FAERS Safety Report 7984087-5 (Version None)
Quarter: 2011Q4

REPORT INFORMATION
  Report Type: 
  Country: None (occurrence: None)
  Receive Date: 20111216
  Receipt Date: 20111213
  Transmission Date: 20120403
  Serious: No
  Sender: FDA-Public Use
  Company Number: US-PFIZER INC-2011303961

PATIENT
  Sex: Female

DRUGS (2)
  1. ASCORBIC ACID [Concomitant]
     Dosage: 1000 UNITS
  2. GEODON [Suspect]
     Indication: DEPRESSION
     Dosage: 40 MG, DAILY EVERY NIGHT
     Dates: start: 20111206

REACTIONS (3)
  - ENERGY INCREASED [None]
  - HANGOVER [None]
  - SOMNOLENCE [None]
